FAERS Safety Report 13890593 (Version 2)
Quarter: 2017Q3

REPORT INFORMATION
  Report Type: Spontaneous
  Country: ES (occurrence: ES)
  Receive Date: 20170822
  Receipt Date: 20170823
  Transmission Date: 20171127
  Serious: Yes (Hospitalization)
  Sender: FDA-Public Use
  Company Number: ES-BAYER-2017-153526

PATIENT
  Age: 61 Year
  Sex: Male
  Weight: 109 kg

DRUGS (5)
  1. ADIRO 100 MG [Suspect]
     Active Substance: ASPIRIN
     Dosage: 30 DF, UNK
     Route: 048
     Dates: start: 20170131, end: 20170717
  2. SEGURIL [Concomitant]
     Active Substance: FUROSEMIDE
     Dosage: UNK
     Route: 048
     Dates: start: 20161024
  3. ALDACTONE [Suspect]
     Active Substance: SPIRONOLACTONE
     Dosage: 20 DF, UNK
     Route: 048
     Dates: start: 20170714, end: 201707
  4. PROPANOLOL [Suspect]
     Active Substance: PROPRANOLOL HYDROCHLORIDE
     Dosage: UNK
     Route: 048
     Dates: start: 20170714, end: 20170717
  5. ENALAPRIL [Suspect]
     Active Substance: ENALAPRIL
     Dosage: UNK
     Route: 048
     Dates: start: 20170131, end: 20170717

REACTIONS (3)
  - Hyponatraemia [Recovered/Resolved]
  - Hypokalaemia [Recovered/Resolved]
  - Renal failure [Recovered/Resolved]

NARRATIVE: CASE EVENT DATE: 20170717
